FAERS Safety Report 10012762 (Version 1)
Quarter: 2014Q1

REPORT INFORMATION
  Report Type: Spontaneous
  Country: GB (occurrence: GB)
  Receive Date: 20140314
  Receipt Date: 20140314
  Transmission Date: 20141002
  Serious: Yes (Other)
  Sender: FDA-Public Use
  Company Number: GB-PFIZER INC-2014069871

PATIENT
  Sex: 0

DRUGS (5)
  1. EXEMESTANE [Suspect]
     Indication: BREAST CANCER
     Dosage: UNK
     Dates: start: 201212
  2. EVEROLIMUS [Suspect]
     Indication: BREAST CANCER
     Dosage: 10 MG, DAILY
     Dates: start: 201212
  3. EVEROLIMUS [Suspect]
     Dosage: 5 MG, DAILY
     Dates: start: 201308
  4. EVEROLIMUS [Suspect]
     Dosage: 10 MG, DAILY
  5. ZOMETA [Suspect]
     Dosage: 6 DF, UNK

REACTIONS (24)
  - Sinusitis [Unknown]
  - Headache [Unknown]
  - Rhinorrhoea [Not Recovered/Not Resolved]
  - Rhinalgia [Unknown]
  - Epistaxis [Unknown]
  - Pain [Unknown]
  - Back pain [Unknown]
  - Neck pain [Unknown]
  - Bone pain [Unknown]
  - Pain in extremity [Unknown]
  - Pelvic pain [Unknown]
  - Gait disturbance [Unknown]
  - Musculoskeletal chest pain [Unknown]
  - Body temperature increased [Unknown]
  - Pruritus [Unknown]
  - Laceration [Unknown]
  - Mouth ulceration [Unknown]
  - Nail disorder [Unknown]
  - Onychoclasis [Unknown]
  - Dysgeusia [Unknown]
  - Paraesthesia [Unknown]
  - Fatigue [Unknown]
  - Disease progression [Unknown]
  - Breast cancer [Unknown]
